FAERS Safety Report 22389045 (Version 1)
Quarter: 2023Q2

REPORT INFORMATION
  Report Type: Spontaneous
  Country: US (occurrence: US)
  Receive Date: 20230531
  Receipt Date: 20230531
  Transmission Date: 20230722
  Serious: No
  Sender: FDA-Public Use
  Company Number: US-MYCOVIA PHARMACEUTICALS, INC.-MY-2022-000031

PATIENT
  Age: 36 Year
  Sex: Female

DRUGS (1)
  1. VIVJOA [Suspect]
     Active Substance: OTESECONAZOLE
     Indication: Vulvovaginal candidiasis
     Dosage: UNK
     Route: 048
     Dates: start: 2022, end: 2022

REACTIONS (6)
  - Candida infection [Unknown]
  - Vaginal discharge [Unknown]
  - Vulvovaginal pruritus [Unknown]
  - Vulvovaginal erythema [Unknown]
  - Drug ineffective [Unknown]
  - Dysuria [Unknown]

NARRATIVE: CASE EVENT DATE: 20220906
